FAERS Safety Report 11029167 (Version 1)
Quarter: 2015Q2

REPORT INFORMATION
  Report Type: Spontaneous
  Country: FR (occurrence: FR)
  Receive Date: 20150415
  Receipt Date: 20150415
  Transmission Date: 20150821
  Serious: Yes (Other)
  Sender: FDA-Public Use
  Company Number: PHHY2015FR042709

PATIENT
  Age: 7 Year
  Sex: Male

DRUGS (1)
  1. LOPERAMIDE SANDOZ [Suspect]
     Active Substance: LOPERAMIDE
     Indication: GASTROENTERITIS
     Route: 065

REACTIONS (6)
  - Intestinal obstruction [Unknown]
  - Abdominal distension [Unknown]
  - Diarrhoea [Unknown]
  - Abdominal pain [Unknown]
  - Product use issue [Unknown]
  - Vomiting [Unknown]
